FAERS Safety Report 5588154-5 (Version None)
Quarter: 2008Q1

REPORT INFORMATION
  Report Type: 
  Country: None (occurrence: None)
  Receive Date: 20080110
  Receipt Date: 20080102
  Transmission Date: 20080703
  Serious: Yes (Other)
  Sender: FDA-Public Use
  Company Number: US-TYCO HEALTHCARE/MALLINCKRODT-T200701585

PATIENT

DRUGS (1)
  1. OPTIMARK [Suspect]
     Indication: ANGIOGRAM
     Dosage: 20 ML, SINGLE
     Route: 042
     Dates: start: 20071214, end: 20071214

REACTIONS (4)
  - FEELING ABNORMAL [None]
  - LACRIMATION INCREASED [None]
  - LETHARGY [None]
  - UNRESPONSIVE TO STIMULI [None]
